FAERS Safety Report 25203360 (Version 2)
Quarter: 2025Q2

REPORT INFORMATION
  Report Type: Spontaneous
  Country: NO (occurrence: NO)
  Receive Date: 20250416
  Receipt Date: 20250424
  Transmission Date: 20250717
  Serious: Yes (Other)
  Sender: OTSUKA
  Company Number: NO-OTSUKA-2025_002153

PATIENT
  Sex: Male

DRUGS (15)
  1. ABILIFY [Suspect]
     Active Substance: ARIPIPRAZOLE
     Indication: Schizoaffective disorder
     Route: 065
     Dates: end: 2022
  2. ABILIFY [Suspect]
     Active Substance: ARIPIPRAZOLE
     Indication: Bipolar disorder
     Route: 065
     Dates: start: 2020, end: 2020
  3. ABILIFY [Suspect]
     Active Substance: ARIPIPRAZOLE
     Route: 065
     Dates: start: 2023, end: 202311
  4. SEROQUEL [Concomitant]
     Active Substance: QUETIAPINE FUMARATE
     Indication: Schizoaffective disorder
     Route: 065
     Dates: start: 2020
  5. SEROQUEL [Concomitant]
     Active Substance: QUETIAPINE FUMARATE
     Indication: Bipolar disorder
  6. VALIUM [Concomitant]
     Active Substance: DIAZEPAM
     Indication: Schizoaffective disorder
     Route: 065
     Dates: start: 2020
  7. VALIUM [Concomitant]
     Active Substance: DIAZEPAM
     Indication: Bipolar disorder
  8. ZYPREXA [Concomitant]
     Active Substance: OLANZAPINE
     Indication: Schizoaffective disorder
     Route: 065
     Dates: start: 2020
  9. ZYPREXA [Concomitant]
     Active Substance: OLANZAPINE
     Indication: Bipolar disorder
  10. OXAZEPAM [Concomitant]
     Active Substance: OXAZEPAM
     Indication: Schizoaffective disorder
     Route: 065
     Dates: start: 2020
  11. OXAZEPAM [Concomitant]
     Active Substance: OXAZEPAM
     Indication: Bipolar disorder
  12. NITRAZEPAM [Concomitant]
     Active Substance: NITRAZEPAM
     Indication: Schizoaffective disorder
     Route: 065
     Dates: start: 2020
  13. NITRAZEPAM [Concomitant]
     Active Substance: NITRAZEPAM
     Indication: Bipolar disorder
  14. LITHIUM SULFATE [Concomitant]
     Active Substance: LITHIUM SULFATE
     Indication: Product used for unknown indication
     Route: 065
  15. ZUCLOPENTHIXOL ACETATE [Concomitant]
     Active Substance: ZUCLOPENTHIXOL ACETATE
     Indication: Product used for unknown indication
     Route: 065

REACTIONS (20)
  - Schizoaffective disorder [Unknown]
  - Erectile dysfunction [Unknown]
  - Adverse event [Unknown]
  - Dysstasia [Unknown]
  - Disinhibition [Unknown]
  - Incontinence [Unknown]
  - Psychomotor skills impaired [Unknown]
  - Visual impairment [Unknown]
  - Thinking abnormal [Unknown]
  - Abdominal distension [Unknown]
  - Poor quality sleep [Unknown]
  - Tic [Unknown]
  - Disturbance in attention [Unknown]
  - Aggression [Unknown]
  - Alopecia [Unknown]
  - Impulse-control disorder [Unknown]
  - Weight increased [Unknown]
  - Restlessness [Unknown]
  - Product use in unapproved indication [Unknown]
  - Economic problem [Unknown]

NARRATIVE: CASE EVENT DATE: 20200101
